APPROVED DRUG PRODUCT: MYKACET
Active Ingredient: NYSTATIN; TRIAMCINOLONE ACETONIDE
Strength: 100,000 UNITS/GM;0.1%
Dosage Form/Route: CREAM;TOPICAL
Application: A062367 | Product #001
Applicant: COSETTE PHARMACEUTICALS INC
Approved: May 28, 1985 | RLD: No | RS: No | Type: DISCN